FAERS Safety Report 9900025 (Version 1)
Quarter: 2014Q1

REPORT INFORMATION
  Report Type: Spontaneous
  Country: US (occurrence: US)
  Receive Date: 20140214
  Receipt Date: 20140214
  Transmission Date: 20141002
  Serious: No
  Sender: FDA-Public Use
  Company Number: US-VIVUS-2014V1000014

PATIENT
  Age: 4 Decade
  Sex: Male
  Weight: 113.05 kg

DRUGS (14)
  1. QSYMIA 7.5MG/46MG [Suspect]
     Indication: PRODUCT USED FOR UNKNOWN INDICATION
     Route: 048
  2. QSYMIA 3.75MG/23MG [Suspect]
     Indication: PRODUCT USED FOR UNKNOWN INDICATION
     Route: 048
     Dates: start: 201307
  3. QSYMIA 3.75MG/23MG [Suspect]
     Route: 048
  4. COZAAR [Concomitant]
     Indication: HYPERTENSION
     Route: 048
  5. ACIPHEX [Concomitant]
     Indication: PRODUCT USED FOR UNKNOWN INDICATION
     Route: 048
  6. METFORMIN [Concomitant]
     Indication: DIABETES MELLITUS
     Route: 048
  7. VICTOZA [Concomitant]
     Indication: DIABETES MELLITUS
     Route: 058
  8. FENFIBRATE [Concomitant]
     Indication: PRODUCT USED FOR UNKNOWN INDICATION
     Route: 048
  9. ATORVASTATIN [Concomitant]
     Indication: BLOOD CHOLESTEROL INCREASED
     Route: 048
  10. L-THYROXINE [Concomitant]
     Indication: HYPOTHYROIDISM
     Route: 048
  11. ASPIRIN [Concomitant]
     Indication: PROPHYLAXIS
     Route: 048
  12. VITAMIN D3 [Concomitant]
     Indication: PROPHYLAXIS
     Route: 048
  13. CIALIS [Concomitant]
     Indication: ERECTILE DYSFUNCTION
     Route: 048
  14. GLIMEPIRIDE [Concomitant]
     Indication: DIABETES MELLITUS
     Route: 048

REACTIONS (1)
  - Blood creatinine increased [Not Recovered/Not Resolved]
